FAERS Safety Report 17912602 (Version 1)
Quarter: 2020Q2

REPORT INFORMATION
  Report Type: Spontaneous
  Country: JP (occurrence: JP)
  Receive Date: 20200618
  Receipt Date: 20200618
  Transmission Date: 20200714
  Serious: Yes (Other)
  Sender: FDA-Public Use
  Company Number: JP-BAYER-2020-120501

PATIENT
  Sex: Female

DRUGS (2)
  1. NEXAVAR [Suspect]
     Active Substance: SORAFENIB
     Indication: THYROID CANCER
     Dosage: 2 DF, BID
     Route: 048
  2. NEXAVAR [Suspect]
     Active Substance: SORAFENIB
     Indication: METASTASES TO LUNG

REACTIONS (6)
  - Diarrhoea [None]
  - Abdominal pain upper [None]
  - Metastases to lung [None]
  - Product dose omission [None]
  - Drug ineffective [None]
  - Alopecia [Recovering/Resolving]
